FAERS Safety Report 15598228 (Version 1)
Quarter: 2018Q4

REPORT INFORMATION
  Report Type: Spontaneous
  Country: CH (occurrence: CH)
  Receive Date: 20181108
  Receipt Date: 20181108
  Transmission Date: 20190205
  Serious: Yes (Hospitalization, Other)
  Sender: FDA-Public Use
  Company Number: CH-SAKK-2018SA299930AA

PATIENT
  Age: 39 Year
  Sex: Female

DRUGS (4)
  1. CHLOROQUINE. [Suspect]
     Active Substance: CHLOROQUINE
     Dates: start: 201405, end: 20140617
  2. DEPAKINE [VALPROATE SODIUM] [Concomitant]
     Dosage: UNK
     Dates: start: 2010
  3. DEPAKINE [VALPROATE SODIUM] [Concomitant]
     Dates: start: 1992, end: 1999
  4. PLAQUENIL [Suspect]
     Active Substance: HYDROXYCHLOROQUINE SULFATE
     Dates: start: 201207, end: 201212

REACTIONS (2)
  - Generalised tonic-clonic seizure [Recovered/Resolved]
  - Myoclonus [Recovered/Resolved]

NARRATIVE: CASE EVENT DATE: 201212
